FAERS Safety Report 10989425 (Version 1)
Quarter: 2015Q1

REPORT INFORMATION
  Report Type: Spontaneous
  Country: US (occurrence: None)
  Receive Date: 20150326
  Receipt Date: 20150326
  Transmission Date: 20150721
  Serious: No
  Sender: FDA-Public Use
  Company Number: 1000072780

PATIENT
  Age: 71 Year
  Sex: Male

DRUGS (3)
  1. MIRALAX (MACROGOL) (MACROGOL) [Concomitant]
  2. BISACODYL (BISACODYL) (BISACODYL) [Concomitant]
  3. LINZESS [Suspect]
     Active Substance: LINACLOTIDE
     Indication: CONSTIPATION
     Route: 048

REACTIONS (3)
  - Intentional product misuse [None]
  - Diarrhoea [None]
  - Flatulence [None]
